FAERS Safety Report 14579781 (Version 2)
Quarter: 2018Q1

REPORT INFORMATION
  Report Type: Spontaneous
  Country: US (occurrence: US)
  Receive Date: 20180227
  Receipt Date: 20180321
  Transmission Date: 20180509
  Serious: Yes (Hospitalization, Other)
  Sender: FDA-Public Use
  Company Number: US-ASTRAZENECA-2018SE22625

PATIENT
  Age: 66 Year
  Sex: Male
  Weight: 93.9 kg

DRUGS (16)
  1. PAREGORIC [Concomitant]
     Active Substance: MORPHINE
     Dosage: 2MG PER 5ML 4 TIMES DAILY AS NEEDED (10 ML)
     Route: 048
  2. PREDNISONE. [Concomitant]
     Active Substance: PREDNISONE
     Route: 048
  3. FLOMAX [Concomitant]
     Active Substance: TAMSULOSIN HYDROCHLORIDE
     Route: 050
  4. TAGRISSO [Suspect]
     Active Substance: OSIMERTINIB
     Indication: LUNG NEOPLASM MALIGNANT
     Route: 048
  5. ARFORMOTEROL [Concomitant]
     Active Substance: ARFORMOTEROL
     Dosage: 15 MCG PER 2 ML, TWO TIMES A DAY
  6. COREG [Concomitant]
     Active Substance: CARVEDILOL
     Route: 050
  7. PLAVIX [Concomitant]
     Active Substance: CLOPIDOGREL BISULFATE
     Route: 050
  8. LOTRIMIN CREAM [Concomitant]
  9. PREDNISONE. [Concomitant]
     Active Substance: PREDNISONE
     Route: 048
  10. LANSOPRAZOLE. [Concomitant]
     Active Substance: LANSOPRAZOLE
     Route: 050
  11. OXYGEN. [Concomitant]
     Active Substance: OXYGEN
  12. VITAMIN D3 LIQUID [Concomitant]
     Route: 048
  13. MEROPENEM. [Suspect]
     Active Substance: MEROPENEM
     Indication: PNEUMONIA ASPIRATION
     Route: 042
  14. CIPRO [Concomitant]
     Active Substance: CIPROFLOXACIN HYDROCHLORIDE
     Route: 050
  15. ATROVENT [Concomitant]
     Active Substance: IPRATROPIUM BROMIDE
     Indication: DYSPNOEA
     Dosage: 0.02% AS REQUIRED
  16. PRAVASTATIN. [Concomitant]
     Active Substance: PRAVASTATIN
     Route: 048

REACTIONS (18)
  - Dyspnoea [Unknown]
  - Pseudomonas infection [Unknown]
  - Hypothyroidism [Unknown]
  - Hypertension [Unknown]
  - Cough [Unknown]
  - Pyrexia [Unknown]
  - Malnutrition [Unknown]
  - Ischaemic stroke [Unknown]
  - Drug ineffective [Recovering/Resolving]
  - Oxygen saturation decreased [Unknown]
  - Productive cough [Unknown]
  - Chronic respiratory failure [Unknown]
  - Coronary artery disease [Unknown]
  - Stridor [Unknown]
  - Diarrhoea [Unknown]
  - Pulmonary mass [Unknown]
  - Carotid artery stenosis [Unknown]
  - Pneumonia aspiration [Unknown]

NARRATIVE: CASE EVENT DATE: 2014
